FAERS Safety Report 9149482 (Version 2)
Quarter: 2013Q2

REPORT INFORMATION
  Report Type: Spontaneous
  Country: JP (occurrence: JP)
  Receive Date: 20130308
  Receipt Date: 20130523
  Transmission Date: 20140414
  Serious: Yes (Hospitalization)
  Sender: FDA-Public Use
  Company Number: PHHY2012JP077983

PATIENT
  Age: 77 Year
  Sex: Male

DRUGS (14)
  1. RIVASTIGMIN [Suspect]
     Indication: DEMENTIA ALZHEIMER^S TYPE
     Dosage: 4.5 MG, ONCE A DAY
     Route: 062
     Dates: start: 201207, end: 20120815
  2. RIVASTIGMIN [Suspect]
     Dosage: 9 MG, ONCE A DAY
     Route: 062
     Dates: start: 20120816, end: 20120824
  3. TERNELIN [Suspect]
     Dosage: 1 MG, TID
     Route: 048
  4. AMLODIPINE BESYLATE [Suspect]
     Dosage: 5 MG, QD
     Route: 048
  5. PAXIL [Suspect]
     Dosage: 10 MG, QD
     Route: 048
  6. MICARDIS [Suspect]
     Dosage: 40 MG, QD
     Route: 048
  7. JANUVIA [Suspect]
     Dosage: 50 MG, QD
     Route: 048
  8. AMARYL [Suspect]
     Dosage: 1 MG, QD
     Route: 048
  9. NITRODERM [Concomitant]
  10. GASCON [Concomitant]
  11. FEBURIC [Concomitant]
  12. BEZAFIBRATE [Concomitant]
  13. NEUQUINON [Concomitant]
  14. DAITALIC [Concomitant]

REACTIONS (3)
  - Atrioventricular block second degree [Not Recovered/Not Resolved]
  - Bradycardia [Recovered/Resolved]
  - Sick sinus syndrome [Recovered/Resolved]
